FAERS Safety Report 10224213 (Version 3)
Quarter: 2014Q3

REPORT INFORMATION
  Report Type: Spontaneous
  Country: US (occurrence: US)
  Receive Date: 20140609
  Receipt Date: 20140711
  Transmission Date: 20150326
  Serious: Yes (Other)
  Sender: FDA-Public Use
  Company Number: US-PFIZER INC-2014152876

PATIENT
  Sex: Female

DRUGS (1)
  1. LIPITOR [Suspect]
     Active Substance: ATORVASTATIN CALCIUM
     Dosage: UNK

REACTIONS (16)
  - Chest discomfort [Unknown]
  - Feeling abnormal [Unknown]
  - Chest pain [Unknown]
  - Asthenia [Unknown]
  - Arthralgia [Unknown]
  - Vision blurred [Unknown]
  - Depression [Unknown]
  - Diabetes mellitus [Unknown]
  - Activities of daily living impaired [Unknown]
  - Insomnia [Unknown]
  - Quality of life decreased [Unknown]
  - Muscle spasms [Unknown]
  - Myalgia [Unknown]
  - Pain [Unknown]
  - Myopathy [Unknown]
  - Blood creatine phosphokinase increased [Unknown]
